FAERS Safety Report 25554704 (Version 1)
Quarter: 2025Q3

REPORT INFORMATION
  Report Type: Spontaneous
  Country: US (occurrence: None)
  Receive Date: 20250714
  Receipt Date: 20250714
  Transmission Date: 20251021
  Serious: No
  Sender: FDA-CTU
  Company Number: None

PATIENT
  Age: 52 Year
  Sex: Female
  Weight: 107.55 kg

DRUGS (8)
  1. CYANOCOBALAMIN\TIRZEPATIDE [Suspect]
     Active Substance: CYANOCOBALAMIN\TIRZEPATIDE
     Route: 050
     Dates: start: 20250301
  2. TRAZODONE [Concomitant]
     Active Substance: TRAZODONE HYDROCHLORIDE
  3. DICLOFENAC [Concomitant]
     Active Substance: DICLOFENAC
  4. PROGESTERONE [Concomitant]
     Active Substance: PROGESTERONE
  5. ESTROGENS [Concomitant]
     Active Substance: ESTROGENS
  6. ACETAMINOPHEN [Concomitant]
     Active Substance: ACETAMINOPHEN
  7. MAGNESIUM OXIDE [Concomitant]
     Active Substance: MAGNESIUM OXIDE
  8. MIRALAX [Concomitant]
     Active Substance: POLYETHYLENE GLYCOL 3350

REACTIONS (2)
  - Allodynia [None]
  - Drug ineffective [None]

NARRATIVE: CASE EVENT DATE: 20250707
